FAERS Safety Report 9293839 (Version 1)
Quarter: 2013Q2

REPORT INFORMATION
  Report Type: Spontaneous
  Country: JP (occurrence: JP)
  Receive Date: 20130516
  Receipt Date: 20130516
  Transmission Date: 20140414
  Serious: Yes (Hospitalization)
  Sender: FDA-Public Use
  Company Number: PHHY2013JP046601

PATIENT
  Age: 17 Year
  Sex: Female
  Weight: 55 kg

DRUGS (5)
  1. PREDNISOLONE [Suspect]
     Indication: STILL^S DISEASE ADULT ONSET
     Dosage: 30 MG, UNK
     Dates: start: 20110707
  2. PREDNISOLONE [Suspect]
     Dosage: 40 MG, UNK
  3. CICLOSPORIN [Suspect]
     Indication: STILL^S DISEASE ADULT ONSET
     Route: 048
     Dates: start: 20110929, end: 20111031
  4. METHYLPREDNISOLONE [Concomitant]
  5. TACROLIMUS [Concomitant]
     Dosage: 1.5 MG
     Dates: start: 20120121, end: 20120131

REACTIONS (2)
  - Drug-induced liver injury [Recovering/Resolving]
  - Drug resistance [Unknown]
